FAERS Safety Report 7948971 (Version 3)
Quarter: 2013Q4

REPORT INFORMATION
  Report Type: Spontaneous
  Country: JP (occurrence: JP)
  Receive Date: 20110517
  Receipt Date: 20131205
  Transmission Date: 20140711
  Serious: Yes (Other)
  Sender: FDA-Public Use
  Company Number: JP-PFIZER INC-2011101383

PATIENT
  Age: 29 Year
  Sex: Female

DRUGS (2)
  1. SOLU-CORTEF [Suspect]
     Indication: TINNITUS
  2. HYDROCORTONE [Suspect]

REACTIONS (2)
  - Anaphylactic shock [Unknown]
  - Drug eruption [Unknown]
